FAERS Safety Report 13470846 (Version 1)
Quarter: 2017Q2

REPORT INFORMATION
  Report Type: Spontaneous
  Country: US (occurrence: US)
  Receive Date: 20170424
  Receipt Date: 20170424
  Transmission Date: 20170830
  Serious: Yes (Hospitalization)
  Sender: FDA-Public Use
  Company Number: US-STRIDES ARCOLAB LIMITED-2017SP002745

PATIENT

DRUGS (5)
  1. ATAZANAVIR [Concomitant]
     Active Substance: ATAZANAVIR
     Indication: ACQUIRED IMMUNODEFICIENCY SYNDROME
     Dosage: UNK, UNKNOWN
     Route: 065
  2. CEFEPIME [Suspect]
     Active Substance: CEFEPIME HYDROCHLORIDE
     Indication: OSTEOMYELITIS
     Dosage: UNK, UNKNOWN
     Route: 042
  3. EMTRICITABINE W/TENOFOVIR [Concomitant]
     Active Substance: EMTRICITABINE\TENOFOVIR DISOPROXIL
     Indication: ACQUIRED IMMUNODEFICIENCY SYNDROME
     Dosage: UNK, UNKNOWN
     Route: 065
  4. RITONAVIR. [Concomitant]
     Active Substance: RITONAVIR
     Indication: ACQUIRED IMMUNODEFICIENCY SYNDROME
     Dosage: UNK, UNKNOWN
     Route: 065
  5. VANCOMYCIN [Suspect]
     Active Substance: VANCOMYCIN
     Indication: OSTEOMYELITIS
     Dosage: UNK, UNKNOWN
     Route: 042

REACTIONS (2)
  - Blood creatinine increased [Recovered/Resolved]
  - Acute kidney injury [Recovered/Resolved]
